FAERS Safety Report 6975590-5 (Version None)
Quarter: 2010Q3

REPORT INFORMATION
  Report Type: 
  Country: None (occurrence: None)
  Receive Date: 20100910
  Receipt Date: 20090318
  Transmission Date: 20110219
  Serious: No
  Sender: FDA-Public Use
  Company Number: US-WYE-H08636209

PATIENT
  Sex: Female

DRUGS (3)
  1. PRISTIQ [Suspect]
     Indication: DEPRESSION
     Route: 048
     Dates: start: 20090201, end: 20090309
  2. ZOCOR [Concomitant]
  3. VERAPAMIL HCL [Concomitant]

REACTIONS (1)
  - BLOOD POTASSIUM INCREASED [None]
